FAERS Safety Report 20360064 (Version 12)
Quarter: 2023Q4

REPORT INFORMATION
  Report Type: Spontaneous
  Country: CA (occurrence: CA)
  Receive Date: 20220121
  Receipt Date: 20231030
  Transmission Date: 20240110
  Serious: Yes (Other)
  Sender: FDA-Public Use
  Company Number: CA-CELLTRION INC.-2021CA018155

PATIENT

DRUGS (27)
  1. INFLECTRA [Suspect]
     Active Substance: INFLIXIMAB-DYYB
     Indication: Colitis ulcerative
     Dosage: 500 MG INDUCTION WEEK 0
     Route: 042
     Dates: start: 20180407, end: 20180407
  2. INFLECTRA [Suspect]
     Active Substance: INFLIXIMAB-DYYB
     Dosage: 500 MG INDUCTION WEEK 2
     Route: 042
     Dates: start: 20180425, end: 20180425
  3. INFLECTRA [Suspect]
     Active Substance: INFLIXIMAB-DYYB
     Dosage: 500 MG INDUCTION WEEK 6
     Route: 042
     Dates: start: 20180523, end: 20180523
  4. INFLECTRA [Suspect]
     Active Substance: INFLIXIMAB-DYYB
     Dosage: 500 MG AT EVERY 8 WEEK
     Route: 042
     Dates: start: 20180718, end: 20190102
  5. INFLECTRA [Suspect]
     Active Substance: INFLIXIMAB-DYYB
     Dosage: 600 MG AT EVERY 8 WEEK
     Route: 042
     Dates: start: 20190227
  6. INFLECTRA [Suspect]
     Active Substance: INFLIXIMAB-DYYB
     Dosage: 600 MG AT EVERY 8 WEEK
     Route: 042
     Dates: start: 20210831
  7. INFLECTRA [Suspect]
     Active Substance: INFLIXIMAB-DYYB
     Dosage: 600 MG AT EVERY 8 WEEK
     Route: 042
     Dates: start: 20211116
  8. INFLECTRA [Suspect]
     Active Substance: INFLIXIMAB-DYYB
     Dosage: 600 MG AT EVERY 8 WEEK
     Route: 042
     Dates: start: 20220111
  9. INFLECTRA [Suspect]
     Active Substance: INFLIXIMAB-DYYB
     Dosage: 600 MG AT EVERY 8 WEEK
     Route: 042
     Dates: start: 20220308
  10. INFLECTRA [Suspect]
     Active Substance: INFLIXIMAB-DYYB
     Dosage: 600 MG AT EVERY 8 WEEK
     Route: 042
     Dates: start: 20220516
  11. INFLECTRA [Suspect]
     Active Substance: INFLIXIMAB-DYYB
     Dosage: 600 MG AT EVERY 8 WEEK
     Route: 042
     Dates: start: 20220711
  12. INFLECTRA [Suspect]
     Active Substance: INFLIXIMAB-DYYB
     Dosage: 600 MG AT EVERY 8 WEEK
     Route: 042
     Dates: start: 20220711
  13. INFLECTRA [Suspect]
     Active Substance: INFLIXIMAB-DYYB
     Dosage: 600 MG AT EVERY 8 WEEKS
     Route: 042
     Dates: start: 20220914
  14. INFLECTRA [Suspect]
     Active Substance: INFLIXIMAB-DYYB
     Dosage: 600 MG AT EVERY 8 WEEKS
     Route: 042
     Dates: start: 20221118
  15. INFLECTRA [Suspect]
     Active Substance: INFLIXIMAB-DYYB
     Dosage: 600 MG AT EVERY 8 WEEKS
     Route: 042
     Dates: start: 20230113
  16. INFLECTRA [Suspect]
     Active Substance: INFLIXIMAB-DYYB
     Dosage: 600 MG AT EVERY 8 WEEKS
     Route: 042
     Dates: start: 20230315
  17. INFLECTRA [Suspect]
     Active Substance: INFLIXIMAB-DYYB
     Dosage: 600 MG AT EVERY 8 WEEKS
     Route: 042
     Dates: start: 20230825
  18. INFLECTRA [Suspect]
     Active Substance: INFLIXIMAB-DYYB
     Dosage: 600 MG, AFTER 8 WEEKS
     Route: 042
     Dates: start: 20231020
  19. ASPIRIN [Concomitant]
     Active Substance: ASPIRIN
     Dosage: 4 MG, Q HS FOR 4 WEEKS ENEMA
     Route: 054
     Dates: start: 20180412
  20. ASACOL [Concomitant]
     Active Substance: MESALAMINE
     Dosage: 2400 UG, 2X/DAY
     Dates: start: 20180408
  21. HYDROCORTISONE [Concomitant]
     Active Substance: HYDROCORTISONE
     Dosage: UNK, FOAM
  22. HYDROCORTISONE [Concomitant]
     Active Substance: HYDROCORTISONE
     Dosage: 10 % HYDROCORTISONE FOAM
  23. IMURAN [Concomitant]
     Active Substance: AZATHIOPRINE
     Dosage: 50 MG, 1X/DAY
     Dates: start: 20180408
  24. NYSTATIN [Concomitant]
     Active Substance: NYSTATIN
     Indication: Oral candidiasis
     Dosage: 1 DF, UNK DOSE
  25. PREDNISONE [Concomitant]
     Active Substance: PREDNISONE
     Dosage: 40 MG, 1X/DAY
     Dates: start: 20180409
  26. ROSUVASTATIN [Concomitant]
     Active Substance: ROSUVASTATIN
     Dosage: 10 MG, 1X/DAY
     Route: 048
     Dates: start: 201703
  27. VALIUM [Concomitant]
     Active Substance: DIAZEPAM
     Dosage: 10 MG, AS NEEDED (1 DF)
     Dates: start: 2003

REACTIONS (12)
  - Hypertension [Not Recovered/Not Resolved]
  - Weight decreased [Unknown]
  - Tooth abscess [Recovering/Resolving]
  - Off label use [Unknown]
  - Intentional product use issue [Unknown]
  - Inappropriate schedule of product administration [Unknown]
  - Abdominal discomfort [Recovering/Resolving]
  - Anxiety [Not Recovered/Not Resolved]
  - Condition aggravated [Recovered/Resolved]
  - Oropharyngeal pain [Recovering/Resolving]
  - Social anxiety disorder [Unknown]
  - Blood cholesterol increased [Unknown]

NARRATIVE: CASE EVENT DATE: 20211116
